FAERS Safety Report 8989919 (Version 2)
Quarter: 2013Q3

REPORT INFORMATION
  Report Type: Spontaneous
  Country: JP (occurrence: JP)
  Receive Date: 20121228
  Receipt Date: 20130705
  Transmission Date: 20140515
  Serious: Yes (Hospitalization)
  Sender: FDA-Public Use
  Company Number: JP-VIIV HEALTHCARE LIMITED-B0854902A

PATIENT
  Age: 61 Year
  Sex: Male

DRUGS (4)
  1. ZIAGEN [Suspect]
     Indication: HIV INFECTION
     Route: 048
  2. EPIVIR [Suspect]
     Indication: HIV INFECTION
     Route: 048
  3. ISENTRESS [Suspect]
     Indication: HIV INFECTION
     Route: 048
  4. VALGANCICLOVIR HYDROCHLORIDE [Suspect]
     Indication: HIV INFECTION
     Route: 048

REACTIONS (3)
  - Cytomegalovirus enterocolitis [Unknown]
  - Diarrhoea [Unknown]
  - White blood cell count decreased [Recovering/Resolving]
